FAERS Safety Report 21793253 (Version 1)
Quarter: 2022Q4

REPORT INFORMATION
  Report Type: Other
  Country: FR (occurrence: FR)
  Receive Date: 20221229
  Receipt Date: 20221229
  Transmission Date: 20230113
  Serious: Yes (Life-Threatening)
  Sender: FDA-Public Use
  Company Number: None

PATIENT

DRUGS (6)
  1. DULOXETINE [Suspect]
     Active Substance: DULOXETINE
     Indication: Toxicity to various agents
     Dosage: 120 MILLIGRAM, 1 TOTAL
     Route: 048
     Dates: start: 20221201, end: 20221201
  2. PAROXETINE [Suspect]
     Active Substance: PAROXETINE
     Indication: Toxicity to various agents
     Dosage: 180 MILLIGRAM, 1 TOTAL
     Route: 048
     Dates: start: 20221201, end: 20221201
  3. ALPRAZOLAM [Suspect]
     Active Substance: ALPRAZOLAM
     Indication: Toxicity to various agents
     Dosage: 6.25 MILLIGRAM, 1 TOTAL
     Route: 048
     Dates: start: 20221201, end: 20221201
  4. ZOPICLONE [Suspect]
     Active Substance: ZOPICLONE
     Indication: Toxicity to various agents
     Dosage: 120 MILLIGRAM, 1 TOTAL
     Route: 048
     Dates: start: 20221201, end: 20221201
  5. PRAZEPAM [Suspect]
     Active Substance: PRAZEPAM
     Indication: Toxicity to various agents
     Dosage: 60 MILLIGRAM, 1 TOTAL
     Route: 048
     Dates: start: 20221201, end: 20221201
  6. TERALITHE [Suspect]
     Active Substance: LITHIUM CARBONATE
     Indication: Toxicity to various agents
     Dosage: 1200 MILLIGRAM, 1 TOTAL
     Route: 048
     Dates: start: 20221201, end: 20221201

REACTIONS (5)
  - Troponin increased [Recovering/Resolving]
  - Electrocardiogram repolarisation abnormality [Recovering/Resolving]
  - Hypothermia [Recovering/Resolving]
  - Coma [Recovering/Resolving]
  - Hypotension [Recovering/Resolving]

NARRATIVE: CASE EVENT DATE: 20221201
